FAERS Safety Report 4806692-7 (Version None)
Quarter: 2005Q4

REPORT INFORMATION
  Report Type: 
  Country: None (occurrence: None)
  Receive Date: 20051019
  Receipt Date: 20051005
  Transmission Date: 20060501
  Serious: No
  Sender: FDA-Public Use
  Company Number: USA041284988

PATIENT
  Age: 83 Year
  Sex: Female

DRUGS (1)
  1. FORTEO [Suspect]
     Indication: OSTEOPOROSIS
     Dates: start: 20031101

REACTIONS (3)
  - BODY HEIGHT DECREASED [None]
  - BONE DENSITY DECREASED [None]
  - PHARMACEUTICAL PRODUCT COMPLAINT [None]
